FAERS Safety Report 7680484-6 (Version None)
Quarter: 2011Q3

REPORT INFORMATION
  Report Type: 
  Country: None (occurrence: None)
  Receive Date: 20110812
  Receipt Date: 20110801
  Transmission Date: 20111222
  Serious: Yes (Hospitalization, Other)
  Sender: FDA-Public Use
  Company Number: US-JNJFOC-20090707501

PATIENT
  Sex: Female
  Weight: 47.4 kg

DRUGS (6)
  1. REMICADE [Suspect]
     Dosage: TOTAL 25 DOSES
     Route: 042
     Dates: start: 20090222
  2. REMICADE [Suspect]
     Route: 042
     Dates: start: 20090301
  3. METRONIDAZOLE [Concomitant]
  4. REMICADE [Suspect]
     Indication: INFLAMMATORY BOWEL DISEASE
     Route: 042
     Dates: start: 20040621
  5. PREDNISONE [Concomitant]
  6. HUMIRA [Concomitant]
     Route: 050

REACTIONS (2)
  - SEPSIS [None]
  - CROHN'S DISEASE [None]
